FAERS Safety Report 9058446 (Version 1)
Quarter: 2013Q1

REPORT INFORMATION
  Report Type: Spontaneous
  Country: US (occurrence: None)
  Receive Date: 20130205
  Receipt Date: 20130205
  Transmission Date: 20140127
  Serious: Yes (Other)
  Sender: FDA-Public Use
  Company Number: None

PATIENT
  Sex: Female
  Weight: 115.67 kg

DRUGS (2)
  1. DEPAKOTE 1000MG ABBOTT LABORATORIES [Suspect]
     Indication: DEPRESSION
     Route: 048
     Dates: start: 20020801, end: 20110410
  2. DEPAKOTE 1000MG ABBOTT LABORATORIES [Suspect]
     Indication: HYPOMANIA
     Route: 048
     Dates: start: 20020801, end: 20110410

REACTIONS (1)
  - Polycystic ovaries [None]
